FAERS Safety Report 9109906 (Version 1)
Quarter: 2013Q1

REPORT INFORMATION
  Report Type: Spontaneous
  Country: PT (occurrence: PT)
  Receive Date: 20130222
  Receipt Date: 20130222
  Transmission Date: 20140127
  Serious: Yes (Other)
  Sender: FDA-Public Use
  Company Number: PT-BRISTOL-MYERS SQUIBB COMPANY-17408931

PATIENT
  Age: 41 Year
  Sex: Female

DRUGS (14)
  1. EFAVIRENZ CAPS [Suspect]
     Indication: ANTIRETROVIRAL THERAPY
     Dates: start: 2003
  2. PEG-INTRON [Suspect]
     Dosage: POWDER FOR INJ
     Dates: start: 2005, end: 2006
  3. RIBAVIRIN [Suspect]
     Indication: ANTIRETROVIRAL THERAPY
     Dosage: CAPS?2005-2005?2005-2008
     Dates: start: 2005, end: 2008
  4. ZIDOVUDINE [Suspect]
     Indication: ANTIRETROVIRAL THERAPY
     Dosage: 2003-2005?2005-2005
     Dates: start: 2003, end: 2005
  5. LAMIVUDINE [Suspect]
     Indication: ANTIRETROVIRAL THERAPY
     Dates: start: 2003, end: 2005
  6. NEVIRAPINE [Suspect]
     Dates: start: 2003, end: 2005
  7. ABACAVIR [Suspect]
     Indication: ANTIRETROVIRAL THERAPY
     Dosage: 2005-2008,JUL10-UNK
     Dates: start: 2005
  8. LOPINAVIR + RITONAVIR [Suspect]
     Dates: start: 2005, end: 2005
  9. INDINAVIR [Suspect]
     Indication: ANTIRETROVIRAL THERAPY
     Dosage: 2005-2006?2006-UNK
     Dates: start: 2005
  10. TENOFOVIR [Suspect]
     Indication: ANTIRETROVIRAL THERAPY
     Dosage: 2005-UNK?JUL10-UNK
     Dates: start: 2005
  11. SAQUINAVIR [Suspect]
     Indication: ANTIRETROVIRAL THERAPY
     Dosage: JUL07-08?JUL10-UNK
     Dates: start: 200707
  12. PEGASYS [Suspect]
     Dates: start: 200804, end: 200805
  13. PEGASYS [Suspect]
     Dates: start: 200804, end: 200805
  14. RITONAVIR [Suspect]
     Dosage: 2005-06?2006-UNK
     Dates: start: 2005

REACTIONS (7)
  - Hepatic cirrhosis [Unknown]
  - Drug resistance [Unknown]
  - Drug intolerance [Unknown]
  - Nausea [Unknown]
  - Vomiting [Unknown]
  - Fatigue [Unknown]
  - Hypertension [Unknown]
